FAERS Safety Report 21438578 (Version 2)
Quarter: 2022Q4

REPORT INFORMATION
  Report Type: Spontaneous
  Country: PL (occurrence: PL)
  Receive Date: 20221011
  Receipt Date: 20221101
  Transmission Date: 20230112
  Serious: Yes (Hospitalization, Other)
  Sender: FDA-Public Use
  Company Number: PL-RECORDATI-2022004529

PATIENT
  Age: 83 Year
  Sex: Female

DRUGS (8)
  1. TORSEMIDE [Suspect]
     Active Substance: TORSEMIDE
     Dosage: UNK
  2. CHOLECALCIFEROL [Suspect]
     Active Substance: CHOLECALCIFEROL
     Dosage: UNK
  3. PANTOPRAZOLE [Suspect]
     Active Substance: PANTOPRAZOLE
     Dosage: UNK
  4. INSULIN GLARGINE [Suspect]
     Active Substance: INSULIN GLARGINE
     Dosage: UNK
  5. SPIRONOLACTONE [Suspect]
     Active Substance: SPIRONOLACTONE
     Dosage: UNK
  6. CARVEDILOL [Suspect]
     Active Substance: CARVEDILOL
     Dosage: UNK
  7. RAMIPRIL [Suspect]
     Active Substance: RAMIPRIL
     Dosage: UNK
  8. ENOXAPARIN SODIUM [Suspect]
     Active Substance: ENOXAPARIN SODIUM
     Dosage: UNK

REACTIONS (1)
  - Ischaemic stroke [Unknown]
